FAERS Safety Report 9708708 (Version 1)
Quarter: 2013Q4

REPORT INFORMATION
  Report Type: Spontaneous
  Country: US (occurrence: US)
  Receive Date: 20131125
  Receipt Date: 20131125
  Transmission Date: 20140711
  Serious: No
  Sender: FDA-Public Use
  Company Number: US-VERTEX PHARMACEUTICALS INC-2013-011273

PATIENT
  Age: 61 Year
  Sex: Male
  Weight: 69 kg

DRUGS (3)
  1. INCIVEK [Suspect]
     Indication: HEPATITIS C
     Dosage: UNK
     Route: 048
     Dates: start: 201301
  2. PEGINTERFERON ALFA [Suspect]
     Indication: HEPATITIS C
     Dosage: UNK
     Dates: start: 201301
  3. RIBAVIRIN [Suspect]
     Indication: HEPATITIS C
     Dosage: UNK
     Dates: start: 201301

REACTIONS (1)
  - Neuropathy peripheral [Not Recovered/Not Resolved]
